FAERS Safety Report 20023820 (Version 1)
Quarter: 2021Q4

REPORT INFORMATION
  Report Type: Spontaneous
  Country: US (occurrence: US)
  Receive Date: 20211102
  Receipt Date: 20211102
  Transmission Date: 20220303
  Serious: No
  Sender: FDA-Public Use
  Company Number: US-PFIZER INC-2019131839

PATIENT
  Age: 60 Year
  Sex: Female

DRUGS (2)
  1. LYRICA [Suspect]
     Active Substance: PREGABALIN
     Indication: Fibromyalgia
     Dosage: 50 MG, 4X/DAY (1 CAP BY MOUTH FOUR TIMES DAILY)
     Route: 048
     Dates: start: 20190708
  2. LYRICA [Suspect]
     Active Substance: PREGABALIN
     Dosage: 50 MG, 3X/DAY, [1 CAP (50 MG) BY MOUTH 3 TIMES DAILY]
     Route: 048
     Dates: start: 20191223

REACTIONS (1)
  - Onychalgia [Unknown]
